FAERS Safety Report 9300460 (Version 1)
Quarter: 2013Q2

REPORT INFORMATION
  Report Type: Spontaneous
  Country: DE (occurrence: DE)
  Receive Date: 20130521
  Receipt Date: 20130521
  Transmission Date: 20140414
  Serious: Yes (Hospitalization)
  Sender: FDA-Public Use
  Company Number: DE-SUN PHARMACEUTICAL INDUSTRIES LTD-2013SUN00599

PATIENT
  Age: 78 Year
  Sex: Female

DRUGS (3)
  1. PANTOPRAZOL SUN 40 MG PULVER ZUR HERSTELLUNG EINER INJEKTIONSL?SUNG [Suspect]
     Indication: DUODENAL ULCER
     Route: 065
  2. PANTOPRAZOL SUN 40 MG PULVER ZUR HERSTELLUNG EINER INJEKTIONSL?SUNG [Suspect]
     Indication: GASTRITIS EROSIVE
  3. ANTIBIOTICS [Concomitant]
     Indication: HELICOBACTER INFECTION

REACTIONS (2)
  - Renal failure acute [Recovered/Resolved]
  - Tubulointerstitial nephritis [Recovered/Resolved]
